FAERS Safety Report 20762351 (Version 3)
Quarter: 2022Q3

REPORT INFORMATION
  Report Type: Spontaneous
  Country: JP (occurrence: JP)
  Receive Date: 20220428
  Receipt Date: 20220810
  Transmission Date: 20221027
  Serious: No
  Sender: FDA-Public Use
  Company Number: JP-GLAXOSMITHKLINE-JP2022JPN070268

PATIENT

DRUGS (3)
  1. SOTROVIMAB [Suspect]
     Active Substance: SOTROVIMAB
     Indication: COVID-19
     Dosage: 500 MG/DAY
     Route: 042
     Dates: start: 20220421, end: 20220421
  2. PRIMPERAN [Suspect]
     Active Substance: METOCLOPRAMIDE HYDROCHLORIDE
     Indication: Nausea
     Dosage: 5 MG/DAY
     Route: 048
     Dates: start: 20220422, end: 20220422
  3. DIPHENHYDRAMINE SALICYLATE\DYPHYLLINE [Suspect]
     Active Substance: DIPHENHYDRAMINE SALICYLATE\DYPHYLLINE
     Indication: Dizziness
     Dosage: 3 DF/DAY
     Route: 048
     Dates: start: 20220422, end: 20220424

REACTIONS (1)
  - Exposure during pregnancy [Unknown]
